FAERS Safety Report 25859869 (Version 1)
Quarter: 2025Q3

REPORT INFORMATION
  Report Type: Spontaneous
  Country: EU (occurrence: EU)
  Receive Date: 20250929
  Receipt Date: 20250929
  Transmission Date: 20251021
  Serious: Yes (Death, Other)
  Sender: AMGEN
  Company Number: EU-AMGEN-ESPSP2025191406

PATIENT
  Age: 56 Year
  Sex: Male

DRUGS (6)
  1. USTEKINUMAB [Suspect]
     Active Substance: USTEKINUMAB
     Indication: Psoriasis
     Route: 065
  2. CORTICOSTEROID NOS [Concomitant]
     Active Substance: CORTICOSTEROID NOS
     Route: 061
  3. CORTICOSTEROID NOS [Concomitant]
     Active Substance: CORTICOSTEROID NOS
     Route: 048
  4. ACITRETIN [Concomitant]
     Active Substance: ACITRETIN
  5. CYCLOSPORINE [Concomitant]
     Active Substance: CYCLOSPORINE
  6. PSORALEN [Concomitant]
     Active Substance: PSORALEN

REACTIONS (3)
  - Death [Fatal]
  - Cutaneous T-cell lymphoma [Unknown]
  - Therapy non-responder [Unknown]
